FAERS Safety Report 13611833 (Version 1)
Quarter: 2017Q2

REPORT INFORMATION
  Report Type: Spontaneous
  Country: US (occurrence: US)
  Receive Date: 20170605
  Receipt Date: 20170605
  Transmission Date: 20170830
  Serious: Yes (Hospitalization)
  Sender: FDA-Public Use
  Company Number: US-PFIZER INC-2017239892

PATIENT
  Age: 73 Year
  Sex: Female
  Weight: 45 kg

DRUGS (3)
  1. TYLENOL WITH CODEINE [Concomitant]
     Active Substance: ACETAMINOPHEN\CODEINE PHOSPHATE
     Indication: PAIN
     Dosage: ONCE A DAY
  2. AROMASIN [Suspect]
     Active Substance: EXEMESTANE
     Indication: BONE CANCER
  3. AROMASIN [Suspect]
     Active Substance: EXEMESTANE
     Indication: BREAST CANCER
     Dosage: 25 MG, BEADY PILL ONCE A DAY
     Dates: start: 201701

REACTIONS (4)
  - Dry mouth [Unknown]
  - Dysphagia [Unknown]
  - Wrist fracture [Unknown]
  - Pharyngeal disorder [Recovering/Resolving]

NARRATIVE: CASE EVENT DATE: 2017
